FAERS Safety Report 9421431 (Version 1)
Quarter: 2013Q3

REPORT INFORMATION
  Report Type: Report from Study
  Country: US (occurrence: US)
  Receive Date: 20130726
  Receipt Date: 20130726
  Transmission Date: 20140515
  Serious: Yes (Other)
  Sender: FDA-Public Use
  Company Number: US-009507513-1307USA013012

PATIENT
  Sex: Male
  Weight: 134.24 kg

DRUGS (7)
  1. VICTRELIS [Suspect]
     Indication: HEPATITIS C
     Dosage: 6 UINT NOT PROVIDED, Q8H
     Route: 065
     Dates: start: 201110
  2. COPEGUS [Suspect]
     Indication: HEPATITIS C
     Dosage: UNK
     Route: 065
     Dates: start: 201110, end: 20130702
  3. COPEGUS [Suspect]
     Dosage: 1 IN THE AM AND 2 IN THE PM, 2 IN 2 DAY
     Route: 065
     Dates: start: 20130702
  4. PEGASYS [Concomitant]
     Indication: HEPATITIS C
     Dosage: UNK, QW
     Route: 065
     Dates: start: 201110
  5. PEGASYS [Concomitant]
     Dosage: UNK, QW
     Route: 065
     Dates: start: 201210
  6. ATENOLOL [Concomitant]
     Indication: HYPERTENSION
     Dosage: 1 UNIT NOT REPORTED, QD
     Dates: start: 20130702
  7. HYDROCHLOROTHIAZIDE [Concomitant]
     Indication: HYPERTENSION
     Dosage: 25 MG

REACTIONS (20)
  - Anaemia [Recovering/Resolving]
  - Feeling jittery [Recovering/Resolving]
  - Pain [Recovering/Resolving]
  - Weight decreased [Recovering/Resolving]
  - Heart rate decreased [Unknown]
  - Asthenia [Recovering/Resolving]
  - Amnesia [Recovering/Resolving]
  - Feeling abnormal [Recovering/Resolving]
  - Dizziness [Recovering/Resolving]
  - Blindness [Recovering/Resolving]
  - Insomnia [Recovering/Resolving]
  - Abdominal discomfort [Not Recovered/Not Resolved]
  - Skin burning sensation [Not Recovered/Not Resolved]
  - Discomfort [Not Recovered/Not Resolved]
  - Diarrhoea [Not Recovered/Not Resolved]
  - Dry mouth [Not Recovered/Not Resolved]
  - Constipation [Not Recovered/Not Resolved]
  - Tooth loss [Not Recovered/Not Resolved]
  - Vomiting [Not Recovered/Not Resolved]
  - Haemorrhoids [Not Recovered/Not Resolved]
